FAERS Safety Report 5381341-0 (Version None)
Quarter: 2007Q2

REPORT INFORMATION
  Report Type: 
  Country: None (occurrence: None)
  Receive Date: 20070629
  Receipt Date: 20061103
  Transmission Date: 20071010
  Serious: Yes (Other)
  Sender: FDA-Public Use
  Company Number: 2006134858

PATIENT
  Age: 15 Year
  Sex: Female

DRUGS (2)
  1. SERTRALINE [Suspect]
     Indication: DEPRESSION
     Dosage: 200 MG (200 MG, 1 IN 1 D)
     Dates: start: 20060801, end: 20061001
  2. MELATONIN (MELATONIN) [Concomitant]

REACTIONS (2)
  - CONDITION AGGRAVATED [None]
  - DEPRESSION [None]
